FAERS Safety Report 10405098 (Version 1)
Quarter: 2014Q3

REPORT INFORMATION
  Report Type: Spontaneous
  Country: US (occurrence: None)
  Receive Date: 20140820
  Receipt Date: 20140820
  Transmission Date: 20150326
  Serious: Yes (Other)
  Sender: FDA-Public Use
  Company Number: 001786252A

PATIENT
  Age: 60 Year
  Sex: Female

DRUGS (7)
  1. PROACTIV PLUS PORE TARGETING TREATMENT [Suspect]
     Active Substance: BENZOYL PEROXIDE
     Indication: ACNE
     Dosage: TWICE DAILY DERMAL
     Dates: start: 20140723, end: 20140724
  2. BP MEDICATION [Concomitant]
  3. PROACTIV PLUS COMPLEXION PERFECTING HYDRATOR [Suspect]
     Active Substance: SALICYLIC ACID
     Indication: ACNE
     Dosage: TWICE DAILY DERMAL
     Dates: start: 20140723, end: 20140724
  4. LOVASTATIN. [Concomitant]
     Active Substance: LOVASTATIN
  5. THYROID MEDICATION [Concomitant]
     Active Substance: UNSPECIFIED INGREDIENT
  6. PROACTIVPLUS SKIN SMOOTHING EXFOLIATOR [Suspect]
     Active Substance: BENZOYL PEROXIDE
     Indication: ACNE
     Dosage: TWICE DAILY DERMAL ?
     Dates: start: 20140723, end: 20140724
  7. PROACTIV PLUS SKIN PURIFYING MASK [Suspect]
     Active Substance: SULFUR
     Indication: ACNE
     Dosage: TWICE DAILY DERMAL
     Dates: start: 20140723, end: 20140724

REACTIONS (7)
  - Pharyngeal oedema [None]
  - Aphagia [None]
  - Oedema mouth [None]
  - Speech disorder [None]
  - Lacrimation increased [None]
  - Skin burning sensation [None]
  - Swelling face [None]

NARRATIVE: CASE EVENT DATE: 20140725
